FAERS Safety Report 22259330 (Version 3)
Quarter: 2023Q2

REPORT INFORMATION
  Report Type: Spontaneous
  Country: JP (occurrence: JP)
  Receive Date: 20230427
  Receipt Date: 20230531
  Transmission Date: 20230722
  Serious: Yes (Death, Other)
  Sender: FDA-Public Use
  Company Number: JP-ELI_LILLY_AND_COMPANY-JP202205011948

PATIENT
  Age: 74 Year
  Sex: Male
  Weight: 67 kg

DRUGS (3)
  1. NECITUMUMAB [Suspect]
     Active Substance: NECITUMUMAB
     Indication: Lung squamous cell carcinoma stage IV
     Dosage: 800 MG, OTHER
     Route: 041
     Dates: start: 20220419, end: 20221024
  2. GEMCITABINE HYDROCHLORIDE [Concomitant]
     Active Substance: GEMCITABINE HYDROCHLORIDE
     Dosage: 1250 MG, OTHER
     Route: 041
     Dates: start: 20220419, end: 20220715
  3. CISPLATIN [Concomitant]
     Active Substance: CISPLATIN
     Dosage: 75 MG, OTHER
     Route: 041
     Dates: start: 20220419, end: 20220718

REACTIONS (3)
  - Death [Fatal]
  - Acne [Not Recovered/Not Resolved]
  - Neutrophil count decreased [Unknown]

NARRATIVE: CASE EVENT DATE: 20220501
